FAERS Safety Report 7476647-5 (Version None)
Quarter: 2011Q2

REPORT INFORMATION
  Report Type: 
  Country: None (occurrence: None)
  Receive Date: 20110512
  Receipt Date: 20110412
  Transmission Date: 20111010
  Serious: Yes (Other)
  Sender: FDA-Public Use
  Company Number: JP-GILEAD-E2B_00001120

PATIENT
  Age: 53 Year
  Sex: Male

DRUGS (2)
  1. ADEFOVIR DIPIVOXIL KIT [Suspect]
     Indication: HEPATITIS
     Dates: start: 20030601
  2. LAMIVUDINE [Suspect]
     Indication: HEPATITIS B
     Route: 065
     Dates: start: 20020401

REACTIONS (5)
  - DRUG RESISTANCE [None]
  - ALANINE AMINOTRANSFERASE INCREASED [None]
  - HEPATITIS [None]
  - DRUG INEFFECTIVE [None]
  - HEPATIC FUNCTION ABNORMAL [None]
